FAERS Safety Report 9897618 (Version 2)
Quarter: 2014Q1

REPORT INFORMATION
  Report Type: Spontaneous
  Country: US (occurrence: US)
  Receive Date: 20140214
  Receipt Date: 20140214
  Transmission Date: 20141002
  Serious: No
  Sender: FDA-Public Use
  Company Number: US-DRREDDYS-USA/USA/13/0029231

PATIENT
  Age: 59 Year
  Sex: Female
  Weight: 56.75 kg

DRUGS (3)
  1. SIMVASTATIN 20 MG [Suspect]
     Indication: BLOOD CHOLESTEROL INCREASED
     Route: 048
     Dates: start: 201204, end: 201304
  2. SIMVASTATIN 20 MG [Suspect]
     Route: 048
  3. VITAMIN D [Concomitant]
     Indication: PRODUCT USED FOR UNKNOWN INDICATION
     Route: 065

REACTIONS (1)
  - Heart rate irregular [Recovered/Resolved]
